FAERS Safety Report 4591669-X (Version None)
Quarter: 2005Q1

REPORT INFORMATION
  Report Type: 
  Country: None (occurrence: None)
  Receive Date: 20050218
  Receipt Date: 20050208
  Transmission Date: 20050727
  Serious: Yes (Death, Other)
  Sender: FDA-Public Use
  Company Number: 2004114504

PATIENT
  Age: 57 Year
  Sex: Male

DRUGS (15)
  1. CEREBYX [Suspect]
     Indication: CONVULSION
     Dosage: 300 MG (100 MG, 3 IN 1
     Dates: start: 20041210, end: 20041216
  2. PHENYTOIN [Suspect]
     Indication: CONVULSION
     Dates: start: 20041217, end: 20041225
  3. ACYCLOVIR [Concomitant]
  4. ACETYLCYSTEINE [Concomitant]
  5. AZTREONAM (AZTREONAM) [Concomitant]
  6. EPOETIN ALFA (EPOETIN ALFA) [Concomitant]
  7. FOLIC ACID [Concomitant]
  8. VITAMINS (VITAMINS) [Concomitant]
  9. INSULIN [Concomitant]
  10. SALBUTAMOL (SALBUTAMOL) [Concomitant]
  11. LANSOPRAZOLE [Concomitant]
  12. LINEZOLID (LINEZOLID) [Concomitant]
  13. METHYLPREDNISOLONE [Concomitant]
  14. ANTINEOPLASTIC AGENTS (ANTINEOPLASTIC AGENTS) [Concomitant]
  15. BLEOMYCIN [Concomitant]

REACTIONS (5)
  - ANTICONVULSANT DRUG LEVEL DECREASED [None]
  - GENERAL PHYSICAL HEALTH DETERIORATION [None]
  - LABORATORY TEST INTERFERENCE [None]
  - PHARMACEUTICAL PRODUCT COMPLAINT [None]
  - RESPIRATORY DISTRESS [None]
